FAERS Safety Report 26191965 (Version 1)
Quarter: 2025Q4

REPORT INFORMATION
  Report Type: Spontaneous
  Country: US (occurrence: US)
  Receive Date: 20251223
  Receipt Date: 20251223
  Transmission Date: 20260117
  Serious: Yes (Other)
  Sender: BLUEPRINT MEDICINES
  Company Number: US-Blueprint Medicines Corporation-2025-AER-02769

PATIENT
  Age: 52 Year
  Sex: Female

DRUGS (1)
  1. AYVAKIT [Suspect]
     Active Substance: AVAPRITINIB
     Indication: Mastocytoma
     Route: 065
     Dates: start: 20240326

REACTIONS (5)
  - Spinal stenosis [Unknown]
  - Laboratory test abnormal [Unknown]
  - Blood glucose increased [Unknown]
  - Injection related reaction [Unknown]
  - Post procedural discomfort [Unknown]
